FAERS Safety Report 25274410 (Version 2)
Quarter: 2025Q2

REPORT INFORMATION
  Report Type: Spontaneous
  Country: US (occurrence: US)
  Receive Date: 20250506
  Receipt Date: 20250530
  Transmission Date: 20250716
  Serious: No
  Sender: IPSEN BIOPHARMACEUTICALS, INC.
  Company Number: US-IPSEN Group, Research and Development-2025-09759

PATIENT
  Age: 57 Year
  Sex: Female
  Weight: 81.65 kg

DRUGS (6)
  1. IQIRVO [Suspect]
     Active Substance: ELAFIBRANOR
     Indication: Primary biliary cholangitis
     Route: 048
     Dates: start: 20250403
  2. DIETARY SUPPLEMENT [Concomitant]
     Active Substance: DIETARY SUPPLEMENT
  3. PROBIOTIC 10B CELL [Concomitant]
  4. VITAMIN D3 [Concomitant]
     Active Substance: CHOLECALCIFEROL
  5. ESOMEPRAZOLE MAGNESIUM [Concomitant]
     Active Substance: ESOMEPRAZOLE MAGNESIUM
  6. URSODIOL [Concomitant]
     Active Substance: URSODIOL

REACTIONS (3)
  - Pruritus [Unknown]
  - Back pain [Unknown]
  - Asthenia [Unknown]

NARRATIVE: CASE EVENT DATE: 20250403
